FAERS Safety Report 15831196 (Version 1)
Quarter: 2018Q4

REPORT INFORMATION
  Report Type: Spontaneous
  Country: US (occurrence: US)
  Receive Date: 20181219
  Receipt Date: 20181219
  Transmission Date: 20190205
  Serious: No
  Sender: FDA-Public Use
  Company Number: None

PATIENT
  Age: 57 Year
  Sex: Female

DRUGS (1)
  1. OXYCODONE [Suspect]
     Active Substance: OXYCODONE
     Indication: FRACTURE PAIN
     Dates: start: 20181218

REACTIONS (4)
  - Middle insomnia [None]
  - Hallucination [None]
  - Nightmare [None]
  - Screaming [None]

NARRATIVE: CASE EVENT DATE: 20181218
